FAERS Safety Report 14303224 (Version 1)
Quarter: 2017Q4

REPORT INFORMATION
  Report Type: Spontaneous
  Country: US (occurrence: US)
  Receive Date: 20171219
  Receipt Date: 20171219
  Transmission Date: 20180321
  Serious: No
  Sender: FDA-Public Use
  Company Number: US-FRESENIUS KABI-FK201710815

PATIENT

DRUGS (1)
  1. ROPIVACAINE FRESENIUS KABI (NOT SPECIFIED) [Suspect]
     Active Substance: ROPIVACAINE
     Indication: PRODUCT USED FOR UNKNOWN INDICATION
     Route: 014

REACTIONS (2)
  - Injection site vesicles [Unknown]
  - Product use issue [Unknown]
